FAERS Safety Report 24130176 (Version 1)
Quarter: 2024Q3

REPORT INFORMATION
  Report Type: Report from Study
  Country: US (occurrence: US)
  Receive Date: 20240724
  Receipt Date: 20240724
  Transmission Date: 20241017
  Serious: No
  Sender: SANDOZ
  Company Number: US-SANDOZ-SDZ2024US066921

PATIENT
  Age: 12 Year
  Sex: Male

DRUGS (2)
  1. OMNITROPE [Suspect]
     Active Substance: SOMATROPIN
     Indication: Hypopituitarism
     Dosage: 1.5 MG 2 DOSE EVERY N/A N/A
     Route: 058
     Dates: start: 20240718
  2. OMNITROPE [Suspect]
     Active Substance: SOMATROPIN
     Indication: Hypopituitarism
     Dosage: 1.5 MG 2 DOSE EVERY N/A N/A
     Route: 058
     Dates: start: 20240718

REACTIONS (3)
  - Injection site haemorrhage [Unknown]
  - Incorrect dose administered [Unknown]
  - Device leakage [Unknown]

NARRATIVE: CASE EVENT DATE: 20240718
